FAERS Safety Report 25059275 (Version 1)
Quarter: 2025Q1

REPORT INFORMATION
  Report Type: Spontaneous
  Country: US (occurrence: US)
  Receive Date: 20250310
  Receipt Date: 20250310
  Transmission Date: 20250408
  Serious: No
  Sender: MERCK SHARP & DOHME LLC
  Company Number: US-009507513-2255776

PATIENT
  Sex: Female
  Weight: 83.461 kg

DRUGS (35)
  1. SOTATERCEPT [Suspect]
     Active Substance: SOTATERCEPT
  2. SOTATERCEPT [Suspect]
     Active Substance: SOTATERCEPT
  3. SOTATERCEPT [Suspect]
     Active Substance: SOTATERCEPT
  4. SOTATERCEPT [Suspect]
     Active Substance: SOTATERCEPT
  5. REMODULIN [Suspect]
     Active Substance: TREPROSTINIL
     Indication: Pulmonary arterial hypertension
     Route: 058
     Dates: start: 20240618
  6. METFORMIN HYDROCHLORIDE [Concomitant]
     Active Substance: METFORMIN HYDROCHLORIDE
  7. MELATONIN [Concomitant]
     Active Substance: MELATONIN
  8. VITAMINS [Concomitant]
     Active Substance: VITAMINS
  9. FAMOTIDINE [Concomitant]
     Active Substance: FAMOTIDINE
  10. BUSPIRONE HCL [Concomitant]
     Active Substance: BUSPIRONE HYDROCHLORIDE
  11. IBUPROFEN [Concomitant]
     Active Substance: IBUPROFEN
  12. FOLIC ACID [Concomitant]
     Active Substance: FOLIC ACID
  13. OXYCODONE HYDROCHLORIDE [Concomitant]
     Active Substance: OXYCODONE HYDROCHLORIDE
  14. PREGABALIN [Concomitant]
     Active Substance: PREGABALIN
  15. PRAZOSIN HYDROCHLORIDE [Concomitant]
     Active Substance: PRAZOSIN HYDROCHLORIDE
  16. HEPARIN [Concomitant]
     Active Substance: HEPARIN SODIUM
  17. SODIUM CHLORIDE [Concomitant]
     Active Substance: SODIUM CHLORIDE
  18. NALOXONE HCL [Concomitant]
     Active Substance: NALOXONE HYDROCHLORIDE
  19. LORAZEPAM [Concomitant]
     Active Substance: LORAZEPAM
  20. SERTRALINE HYDROCHLORIDE [Concomitant]
     Active Substance: SERTRALINE HYDROCHLORIDE
  21. SILDENAFIL CITRATE [Concomitant]
     Active Substance: SILDENAFIL CITRATE
  22. POTASSIUM CHLORIDE [Concomitant]
     Active Substance: POTASSIUM CHLORIDE
  23. ALBUTEROL SULFATE [Concomitant]
     Active Substance: ALBUTEROL SULFATE
  24. SPIRONOLACTONE [Concomitant]
     Active Substance: SPIRONOLACTONE
  25. OXYGEN [Concomitant]
     Active Substance: OXYGEN
  26. VITAMIN B12 [Concomitant]
     Active Substance: CYANOCOBALAMIN
  27. CETIRIZINE HCL [Concomitant]
     Active Substance: CETIRIZINE HYDROCHLORIDE
  28. ONDANSETRON ODT, [Concomitant]
  29. ACETAMINOPHEN [Concomitant]
     Active Substance: ACETAMINOPHEN
  30. TORSEMIDE [Concomitant]
     Active Substance: TORSEMIDE
  31. AMBRISENTAN [Concomitant]
     Active Substance: AMBRISENTAN
  32. ACETAMINOPHEN\OXYCODONE HYDROCHLORIDE [Concomitant]
     Active Substance: ACETAMINOPHEN\OXYCODONE HYDROCHLORIDE
  33. ONDANSETRON HYDROCHLORIDE [Concomitant]
     Active Substance: ONDANSETRON HYDROCHLORIDE
  34. FISH OIL [Concomitant]
     Active Substance: FISH OIL
  35. LORATADINE [Concomitant]
     Active Substance: LORATADINE

REACTIONS (1)
  - Adverse drug reaction [Unknown]
